FAERS Safety Report 9857819 (Version 5)
Quarter: 2014Q2

REPORT INFORMATION
  Report Type: Spontaneous
  Country: PT (occurrence: PT)
  Receive Date: 20140131
  Receipt Date: 20140423
  Transmission Date: 20141212
  Serious: Yes (Death, Hospitalization, Other)
  Sender: FDA-Public Use
  Company Number: PT-BRISTOL-MYERS SQUIBB COMPANY-20085841

PATIENT
  Age: 5 Decade
  Sex: Female

DRUGS (1)
  1. YERVOY [Suspect]
     Indication: METASTATIC MALIGNANT MELANOMA
     Dates: start: 20140116

REACTIONS (9)
  - Malignant neoplasm progression [Fatal]
  - Musculoskeletal pain [Unknown]
  - Urinary tract infection [Unknown]
  - Suicidal behaviour [Unknown]
  - Renal failure acute [Unknown]
  - Altered state of consciousness [Unknown]
  - Generalised oedema [Unknown]
  - Dysphagia [Unknown]
  - Dyspnoea [Unknown]
